FAERS Safety Report 16782131 (Version 1)
Quarter: 2019Q3

REPORT INFORMATION
  Report Type: Spontaneous
  Country: CN (occurrence: CN)
  Receive Date: 20190906
  Receipt Date: 20190906
  Transmission Date: 20191005
  Serious: Yes (Death)
  Sender: FDA-Public Use
  Company Number: CN-ALLERGAN-1936368US

PATIENT
  Sex: Male

DRUGS (8)
  1. STANOZOLOL [Suspect]
     Active Substance: STANOZOLOL
     Indication: APLASTIC ANAEMIA
     Dosage: UNK
     Route: 065
     Dates: start: 201803, end: 201806
  2. MESALAZINE UNK [Suspect]
     Active Substance: MESALAMINE
     Indication: CROHN^S DISEASE
     Dosage: UNK
     Route: 065
     Dates: start: 201610, end: 201803
  3. CYCLOSPORINE. [Suspect]
     Active Substance: CYCLOSPORINE
     Indication: APLASTIC ANAEMIA
     Dosage: UNK
     Route: 065
     Dates: start: 200810, end: 201204
  4. CORTICOSTEROIDS [Suspect]
     Active Substance: CORTICOSTEROID NOS
     Indication: CROHN^S DISEASE
     Dosage: UNK
     Route: 065
     Dates: start: 201003, end: 201303
  5. CORTICOSTEROIDS [Suspect]
     Active Substance: CORTICOSTEROID NOS
     Indication: APLASTIC ANAEMIA
     Dosage: UNK
     Route: 065
     Dates: start: 201610, end: 201803
  6. ANTIBIOTICS [Concomitant]
     Active Substance: UNSPECIFIED INGREDIENT
  7. NUTRITIONAL SUPPLEMENTATION [Concomitant]
  8. GRANULOCYTE COLONY STIMULATING FACTOR [Concomitant]
     Active Substance: GRANULOCYTE COLONY-STIMULATING FACTOR NOS
     Dosage: UNK
     Dates: start: 201803, end: 201806

REACTIONS (5)
  - Malabsorption [Fatal]
  - Infection [Fatal]
  - Crohn^s disease [Fatal]
  - Cachexia [Fatal]
  - Haemorrhage [Fatal]
